FAERS Safety Report 20169793 (Version 1)
Quarter: 2021Q4

REPORT INFORMATION
  Report Type: Report from Study
  Country: ES (occurrence: ES)
  Receive Date: 20211210
  Receipt Date: 20211210
  Transmission Date: 20220303
  Serious: Yes (Other)
  Sender: FDA-Public Use
  Company Number: None

PATIENT
  Age: 54 Year
  Sex: Female

DRUGS (1)
  1. ABATACEPT [Suspect]
     Active Substance: ABATACEPT
     Indication: Rheumatoid arthritis
     Dosage: 60 MG / 4 SEMANAS
     Route: 042
     Dates: start: 20190517

REACTIONS (1)
  - Abscess [Recovered/Resolved]

NARRATIVE: CASE EVENT DATE: 20210615
